FAERS Safety Report 6922959-0 (Version None)
Quarter: 2010Q3

REPORT INFORMATION
  Report Type: 
  Country: None (occurrence: None)
  Receive Date: 20100813
  Receipt Date: 20100804
  Transmission Date: 20110219
  Serious: Yes (Hospitalization)
  Sender: FDA-Public Use
  Company Number: US-ASTRAZENECA-2010SE36713

PATIENT
  Age: 27174 Day
  Sex: Female

DRUGS (10)
  1. CRESTOR [Suspect]
     Route: 048
  2. ATENOLOL [Concomitant]
     Route: 065
  3. COUMADIN [Concomitant]
     Route: 065
  4. POTASSIUM [Concomitant]
     Dosage: BID
     Route: 065
  5. PREDNISONE [Concomitant]
     Route: 065
  6. DILTIAZEM [Concomitant]
     Route: 065
  7. LASIX [Concomitant]
     Route: 065
  8. MALTAQ [Concomitant]
     Route: 065
     Dates: end: 20100803
  9. NOVALOG [Concomitant]
     Route: 065
  10. LANTUS [Concomitant]
     Route: 065

REACTIONS (5)
  - ANKLE FRACTURE [None]
  - ATRIAL FIBRILLATION [None]
  - PRODUCT COMMINGLING [None]
  - SYNCOPE [None]
  - WRONG DRUG ADMINISTERED [None]
